FAERS Safety Report 17840356 (Version 9)
Quarter: 2020Q3

REPORT INFORMATION
  Report Type: Spontaneous
  Country: PL (occurrence: PL)
  Receive Date: 20200529
  Receipt Date: 20200901
  Transmission Date: 20201103
  Serious: Yes (Life-Threatening, Hospitalization, Disabling, Other)
  Sender: FDA-Public Use
  Company Number: PL-MYLANLABS-2020M1051920

PATIENT
  Age: 30 Year
  Sex: Female

DRUGS (8)
  1. LEVETIRACETAM. [Suspect]
     Active Substance: LEVETIRACETAM
     Indication: EPILEPSY
     Dosage: 1500 MILLIGRAM, DAILY
     Route: 065
  2. LACOSAMIDE. [Concomitant]
     Active Substance: LACOSAMIDE
     Indication: EPILEPSY
     Dosage: 300 MILLIGRAM, QD
     Route: 065
  3. OXCARBAZEPINE. [Suspect]
     Active Substance: OXCARBAZEPINE
     Indication: FOCAL DYSCOGNITIVE SEIZURES
  4. OXCARBAZEPINE. [Suspect]
     Active Substance: OXCARBAZEPINE
     Indication: EPILEPSY
     Dosage: UNK
     Route: 065
  5. LAMOTRIGINE. [Suspect]
     Active Substance: LAMOTRIGINE
     Indication: EPILEPSY
     Dosage: UNK
     Route: 065
  6. LEVETIRACETAM. [Suspect]
     Active Substance: LEVETIRACETAM
     Indication: FOCAL DYSCOGNITIVE SEIZURES
     Dosage: 2000 MILLIGRAM, DAILY
     Route: 065
  7. VIGABATRIN. [Suspect]
     Active Substance: VIGABATRIN
     Indication: EPILEPSY
     Dosage: UNK
     Route: 065
  8. VALPROATE [Suspect]
     Active Substance: VALPROIC ACID
     Indication: EPILEPSY
     Dosage: 1000 MILLIGRAM, DAILY
     Route: 065

REACTIONS (9)
  - Hypersensitivity [Unknown]
  - Focal dyscognitive seizures [Recovered/Resolved]
  - Seizure [Recovered/Resolved]
  - Somnolence [Unknown]
  - Drug hypersensitivity [Unknown]
  - Drug ineffective [Unknown]
  - Headache [Unknown]
  - Condition aggravated [Unknown]
  - Drug intolerance [Unknown]
